FAERS Safety Report 26116631 (Version 1)
Quarter: 2025Q4

REPORT INFORMATION
  Report Type: Spontaneous
  Country: US (occurrence: US)
  Receive Date: 20251203
  Receipt Date: 20251203
  Transmission Date: 20260117
  Serious: No
  Sender: BIOCRYST PHARMACEUTICALS
  Company Number: US-BIOCRYST PHARMACEUTICALS, INC.-2025BCR01459

PATIENT

DRUGS (1)
  1. BEROTRALSTAT [Suspect]
     Active Substance: BEROTRALSTAT
     Dosage: 150.000 MG, QD

REACTIONS (2)
  - Hereditary angioedema [Unknown]
  - Condition aggravated [Unknown]
